FAERS Safety Report 20710222 (Version 1)
Quarter: 2022Q2

REPORT INFORMATION
  Report Type: Spontaneous
  Country: IT (occurrence: IT)
  Receive Date: 20220414
  Receipt Date: 20220414
  Transmission Date: 20220720
  Serious: Yes (Hospitalization)
  Sender: FDA-Public Use
  Company Number: IT-ELI_LILLY_AND_COMPANY-IT202204002277

PATIENT

DRUGS (10)
  1. RETEVMO [Suspect]
     Active Substance: SELPERCATINIB
     Indication: Product used for unknown indication
     Dosage: UNK, BID
     Route: 065
     Dates: start: 20211227
  2. EDOXABAN TOSYLATE [Concomitant]
     Active Substance: EDOXABAN TOSYLATE
     Indication: Product used for unknown indication
     Dosage: 30 MG, DAILY (28 TABLETS)
     Dates: start: 20201123
  3. LEVOTHYROXINE SODIUM [Concomitant]
     Active Substance: LEVOTHYROXINE SODIUM
     Indication: Product used for unknown indication
     Dosage: 75 UG, DAILY(50 TABLETS; ON AN EMPTY STOMACH)
     Route: 065
     Dates: start: 20200810
  4. DISSENTEN ANTIDIARREA [Concomitant]
     Indication: Diarrhoea
     Dosage: 2 MG, OTHER(10 TABLETS; AS NEEDED AFTER DIARRHEA 2 TABLETS)
     Dates: start: 20201123
  5. ELATREX [Concomitant]
     Indication: Product used for unknown indication
     Dosage: UNK, DAILY(28 TABLETS 10MG+5MG PROLONGED RELEASE)
     Route: 065
     Dates: start: 20220112
  6. ELATREX [Concomitant]
     Dosage: UNK, UNKNOWN
     Route: 065
     Dates: start: 20220201, end: 202203
  7. ORAMORPH SR SUSTAINED RELEASE [Concomitant]
     Active Substance: MORPHINE SULFATE
     Indication: Pain
     Dosage: UNK, OTHER (20 VIALS; 1 VIAL IN CASE OF STRONG PAIN)
     Route: 048
     Dates: start: 20220124
  8. PANTOPRAZOLE SODIUM [Concomitant]
     Active Substance: PANTOPRAZOLE SODIUM
     Indication: Product used for unknown indication
     Dosage: 40 MG, DAILY (14 TABLETS GASTRO-RESISTANT)
     Route: 065
     Dates: start: 20220124
  9. LASIX [Concomitant]
     Active Substance: FUROSEMIDE
     Indication: Oedema
     Dosage: UNK, UNKNOWN (30 TABLETS)
     Route: 065
     Dates: start: 20220215
  10. CALCIUM\CHOLECALCIFEROL [Concomitant]
     Active Substance: CALCIUM\CHOLECALCIFEROL
     Indication: Product used for unknown indication
     Dosage: UNK, DAILY(30 SACHETS 1G+880UI)
     Route: 065

REACTIONS (2)
  - Haemothorax [Recovering/Resolving]
  - Chest pain [Recovering/Resolving]
